FAERS Safety Report 6092132-X (Version None)
Quarter: 2009Q1

REPORT INFORMATION
  Report Type: 
  Country: None (occurrence: None)
  Receive Date: 20090219
  Receipt Date: 20081126
  Transmission Date: 20090719
  Serious: No
  Sender: FDA-Public Use
  Company Number: WAES 0808USA01834

PATIENT
  Age: 72 Year
  Sex: Female
  Weight: 51.2565 kg

DRUGS (3)
  1. JANUVIA [Suspect]
     Indication: DIABETES MELLITUS
     Dosage: 100 MG/DAILY/PO
     Route: 048
     Dates: start: 20080501
  2. CHOLESTEROL [Concomitant]
  3. METFORMIN HCL [Concomitant]

REACTIONS (1)
  - WEIGHT DECREASED [None]
